FAERS Safety Report 8420841-3 (Version None)
Quarter: 2012Q2

REPORT INFORMATION
  Report Type: 
  Country: None (occurrence: None)
  Receive Date: 20120530
  Receipt Date: 20120515
  Transmission Date: 20120825
  Serious: Yes (Life-Threatening, Hospitalization)
  Sender: FDA-Public Use
  Company Number: 2012-00784

PATIENT
  Age: 50 Year
  Sex: Female

DRUGS (7)
  1. QUETIAPINE [Suspect]
     Dosage: (100 MG,   )
  2. LEVOTHYROXINE (UNKNOWN) [Concomitant]
  3. OMEPRAZOLE [Concomitant]
  4. CLOMIPRAMINE HCL [Suspect]
  5. LITHIUM CARBONATE [Suspect]
  6. MEFENAMIC ACID [Suspect]
  7. BACLOFEN [Concomitant]

REACTIONS (12)
  - NEPHROGENIC DIABETES INSIPIDUS [None]
  - DYSTONIA [None]
  - ENCEPHALITIS [None]
  - CONVULSION [None]
  - NEUROLEPTIC MALIGNANT SYNDROME [None]
  - RENAL FAILURE ACUTE [None]
  - TOXICITY TO VARIOUS AGENTS [None]
  - RHABDOMYOLYSIS [None]
  - URINE OSMOLARITY INCREASED [None]
  - MALAISE [None]
  - URINE OUTPUT INCREASED [None]
  - ACUTE PSYCHOSIS [None]
